FAERS Safety Report 25994243 (Version 1)
Quarter: 2025Q4

REPORT INFORMATION
  Report Type: Spontaneous
  Country: CN (occurrence: CN)
  Receive Date: 20251104
  Receipt Date: 20251104
  Transmission Date: 20260118
  Serious: Yes (Other)
  Sender: ROCHE
  Company Number: CN-ROCHE-10000419789

PATIENT
  Age: 61 Year
  Sex: Female

DRUGS (1)
  1. ALECTINIB HYDROCHLORIDE [Suspect]
     Active Substance: ALECTINIB HYDROCHLORIDE
     Indication: Lung adenocarcinoma stage IV
     Route: 048
     Dates: start: 20251002, end: 20251018

REACTIONS (3)
  - Anaphylactoid reaction [Recovered/Resolved]
  - Anaemia [Recovered/Resolved]
  - Bradycardia [Recovered/Resolved]

NARRATIVE: CASE EVENT DATE: 20251018
